FAERS Safety Report 5002583-X (Version None)
Quarter: 2006Q2

REPORT INFORMATION
  Report Type: 
  Country: None (occurrence: None)
  Receive Date: 20060515
  Receipt Date: 20051103
  Transmission Date: 20061013
  Serious: Yes (Death, Hospitalization, Other)
  Sender: FDA-Public Use
  Company Number: US-MERCK-0511USA00593

PATIENT
  Age: 72 Year
  Sex: Male

DRUGS (11)
  1. VIOXX [Suspect]
     Indication: BACK PAIN
     Route: 048
     Dates: start: 20010201, end: 20021101
  2. VIOXX [Suspect]
     Indication: ARTHRITIS
     Route: 048
     Dates: start: 20010201, end: 20021101
  3. THEOPHYLLINE [Concomitant]
     Route: 065
  4. VENTOLIN [Concomitant]
     Route: 065
  5. CASODEX [Concomitant]
     Route: 065
  6. ALBUTEROL [Concomitant]
     Route: 055
  7. ATROVENT [Concomitant]
     Route: 055
  8. DITROPAN [Concomitant]
     Route: 048
  9. MILK OF MAGNESIA TAB [Concomitant]
     Route: 065
  10. PERCOCET [Concomitant]
     Route: 048
  11. XALATAN [Concomitant]
     Route: 047

REACTIONS (9)
  - ATRIAL FIBRILLATION [None]
  - BACK PAIN [None]
  - CEREBROVASCULAR ACCIDENT [None]
  - CHRONIC OBSTRUCTIVE PULMONARY DISEASE [None]
  - DEATH [None]
  - DYSPEPSIA [None]
  - EMBOLISM [None]
  - HYPOKALAEMIA [None]
  - PROSTATE CANCER [None]
